FAERS Safety Report 4907733-9 (Version None)
Quarter: 2006Q1

REPORT INFORMATION
  Report Type: 
  Country: None (occurrence: None)
  Receive Date: 20060208
  Receipt Date: 20060208
  Transmission Date: 20060701
  Serious: Yes (Hospitalization)
  Sender: FDA-Public Use
  Company Number: None

PATIENT
  Age: 81 Year
  Sex: Male

DRUGS (1)
  1. WARFARIN [Suspect]
     Indication: ATRIAL FIBRILLATION
     Dosage: 5MG M,W,F  +  2.5MG T,TH,SA, + SU
     Dates: start: 19951101

REACTIONS (1)
  - GASTROINTESTINAL HAEMORRHAGE [None]
